FAERS Safety Report 16749774 (Version 1)
Quarter: 2019Q4

REPORT INFORMATION
  Report Type: Spontaneous
  Country: US (occurrence: US)
  Receive Date: 20190823
  Receipt Date: 20190823
  Transmission Date: 20200122
  Serious: No
  Sender: FDA-Public Use
  Company Number: None

PATIENT
  Age: 62 Year
  Sex: Male
  Weight: 95.4 kg

DRUGS (12)
  1. MINIPRESS [Concomitant]
     Active Substance: PRAZOSIN HYDROCHLORIDE
  2. HYDROXYZINE HCL [Concomitant]
     Active Substance: HYDROXYZINE HYDROCHLORIDE
  3. PLATINUM AND DANK BRAND MARIJUANA CARTRIDGES (VAPE THC\NICOTINE) [Suspect]
     Active Substance: .DELTA.8-TETRAHYDROCANNABINOL\DEVICE\HERBALS\NICOTINE
     Indication: POST-TRAUMATIC STRESS DISORDER
  4. JANUMET [Concomitant]
     Active Substance: METFORMIN HYDROCHLORIDE\SITAGLIPTIN PHOSPHATE
  5. METOPORAL [Concomitant]
  6. PRAZOSIN. [Concomitant]
     Active Substance: PRAZOSIN
  7. LEVIMER [Concomitant]
  8. VISTRAL [Concomitant]
  9. LISANOPRIL [Concomitant]
  10. MULTIVITAMIN [Concomitant]
     Active Substance: VITAMINS
  11. LOSARTIN [Concomitant]
     Active Substance: LOSARTAN
  12. RABEPROZELE [Concomitant]

REACTIONS (1)
  - Syncope [None]

NARRATIVE: CASE EVENT DATE: 20190701
